FAERS Safety Report 7396873-3 (Version None)
Quarter: 2011Q1

REPORT INFORMATION
  Report Type: 
  Country: None (occurrence: None)
  Receive Date: 20110331
  Receipt Date: 20110331
  Transmission Date: 20110831
  Serious: Yes (Other)
  Sender: FDA-Public Use
  Company Number: None

PATIENT
  Age: 44 Year
  Sex: Female
  Weight: 113.3993 kg

DRUGS (13)
  1. LAMICTAL [Concomitant]
  2. VICTOZA 18MG/3ML NOVO NORDISK [Suspect]
     Indication: TYPE 2 DIABETES MELLITUS
     Dosage: 1.2 MG ONE TIME PER DAY SQ
     Route: 058
     Dates: start: 20110218, end: 20110330
  3. WELLBUTRIN [Concomitant]
  4. ATIVAN [Concomitant]
  5. GLUCATROL [Concomitant]
  6. FOLIC ACID [Concomitant]
  7. FISH/FLAX OIL [Concomitant]
  8. POTASSIUM [Concomitant]
  9. VITAMIN B-12 [Concomitant]
  10. MARCARDIS [Concomitant]
  11. NUVARING [Concomitant]
  12. ALLEGRA [Concomitant]
  13. METFORMIN HCL [Concomitant]

REACTIONS (4)
  - NAUSEA [None]
  - DIARRHOEA [None]
  - DYSPEPSIA [None]
  - INJECTION SITE HYPERSENSITIVITY [None]
